FAERS Safety Report 12924232 (Version 1)
Quarter: 2016Q4

REPORT INFORMATION
  Report Type: Spontaneous
  Country: TR (occurrence: TR)
  Receive Date: 20161109
  Receipt Date: 20161109
  Transmission Date: 20170207
  Serious: Yes (Other)
  Sender: FDA-Public Use
  Company Number: TR-CONCORDIA PHARMACEUTICALS INC.-GSH201611-005640

PATIENT
  Age: 51 Year
  Sex: Male

DRUGS (2)
  1. PREDNISOLONE. [Concomitant]
     Active Substance: PREDNISOLONE
     Indication: RHEUMATOID ARTHRITIS
     Route: 048
  2. HYDROXYCHLOROQUINE [Suspect]
     Active Substance: HYDROXYCHLOROQUINE
     Indication: RHEUMATOID ARTHRITIS

REACTIONS (13)
  - Biopsy skin abnormal [Recovered/Resolved]
  - Erythema [Recovered/Resolved]
  - Hyperkeratosis [Recovered/Resolved]
  - Acanthosis [Recovered/Resolved]
  - Skin oedema [Recovered/Resolved]
  - Rash pustular [Recovered/Resolved]
  - Skin plaque [Recovered/Resolved]
  - Skin lesion [Recovered/Resolved]
  - Erythema multiforme [Recovered/Resolved]
  - Rash pruritic [Recovered/Resolved]
  - Papule [Recovered/Resolved]
  - Rash maculo-papular [Recovered/Resolved]
  - Eczema [Recovered/Resolved]
